FAERS Safety Report 5139241-7 (Version None)
Quarter: 2006Q4

REPORT INFORMATION
  Report Type: 
  Country: None (occurrence: None)
  Receive Date: 20061024
  Receipt Date: 20061013
  Transmission Date: 20070319
  Serious: Yes (Disabling)
  Sender: FDA-Public Use
  Company Number: 06H-163-0310770-00

PATIENT
  Age: 18 Year
  Sex: Female

DRUGS (2)
  1. BUPIVACAINE HCL + EPI. INJECTION (BUPIVACAINE HCL  + EPINEPHRINE INJEC [Suspect]
     Indication: PAIN
     Dosage: VIA PAIN PUMP
  2. CORTISONE ACETATE [Concomitant]

REACTIONS (6)
  - CALCINOSIS [None]
  - CHONDROLYSIS [None]
  - INFLAMMATION [None]
  - LIGAMENT DISORDER [None]
  - MUSCULOSKELETAL PAIN [None]
  - OSTEOARTHRITIS [None]
